FAERS Safety Report 8215961-2 (Version None)
Quarter: 2012Q1

REPORT INFORMATION
  Report Type: 
  Country: None (occurrence: None)
  Receive Date: 20120316
  Receipt Date: 20120313
  Transmission Date: 20120608
  Serious: No
  Sender: FDA-Public Use
  Company Number: US-PFIZER INC-2012067529

PATIENT
  Sex: Male

DRUGS (3)
  1. CELEBREX [Suspect]
     Indication: NECK PAIN
     Dosage: 200 MG, (DAILY)
  2. CELEBREX [Suspect]
     Indication: INTERVERTEBRAL DISC DEGENERATION
  3. CELEBREX [Suspect]
     Indication: BACK PAIN

REACTIONS (1)
  - DRUG INEFFECTIVE [None]
